FAERS Safety Report 18269719 (Version 7)
Quarter: 2024Q2

REPORT INFORMATION
  Report Type: Spontaneous
  Country: CA (occurrence: CA)
  Receive Date: 20200915
  Receipt Date: 20240415
  Transmission Date: 20240716
  Serious: Yes (Hospitalization, Other)
  Sender: FDA-Public Use
  Company Number: CA-BAUSCH-BL-2020-025906

PATIENT
  Age: 48 Year
  Sex: Female
  Weight: 106 kg

DRUGS (94)
  1. LORAZEPAM [Suspect]
     Active Substance: LORAZEPAM
     Indication: Tardive dyskinesia
     Dosage: NOT SPECIFIED
     Route: 048
  2. LORAZEPAM [Suspect]
     Active Substance: LORAZEPAM
     Route: 048
  3. LORAZEPAM [Suspect]
     Active Substance: LORAZEPAM
     Route: 048
  4. LORAZEPAM [Suspect]
     Active Substance: LORAZEPAM
     Route: 048
  5. LORAZEPAM [Suspect]
     Active Substance: LORAZEPAM
     Dosage: NOT SPECIFIED
     Route: 048
  6. DEXAMETHASONE [Suspect]
     Active Substance: DEXAMETHASONE
     Indication: Supportive care
     Route: 048
  7. DEXAMETHASONE [Suspect]
     Active Substance: DEXAMETHASONE
     Dosage: NOT SPECIFIED
     Route: 048
  8. DEXAMETHASONE [Suspect]
     Active Substance: DEXAMETHASONE
     Indication: Supportive care
     Route: 048
  9. DEXAMETHASONE [Suspect]
     Active Substance: DEXAMETHASONE
     Route: 048
  10. DOXORUBICIN [Suspect]
     Active Substance: DOXORUBICIN
     Indication: Breast cancer
     Dosage: SOLUTION?INTRAVENOUS
     Route: 042
  11. DOXORUBICIN [Suspect]
     Active Substance: DOXORUBICIN
     Route: 042
  12. DOXORUBICIN [Suspect]
     Active Substance: DOXORUBICIN
     Route: 042
  13. DOXORUBICIN [Suspect]
     Active Substance: DOXORUBICIN
     Route: 042
  14. ENOXAPARIN [Suspect]
     Active Substance: ENOXAPARIN
     Indication: Tardive dyskinesia
     Route: 058
  15. ENOXAPARIN [Suspect]
     Active Substance: ENOXAPARIN
     Route: 058
  16. FILGRASTIM [Suspect]
     Active Substance: FILGRASTIM
     Indication: Supportive care
     Route: 065
  17. FILGRASTIM [Suspect]
     Active Substance: FILGRASTIM
     Route: 065
  18. FILGRASTIM [Suspect]
     Active Substance: FILGRASTIM
     Route: 048
  19. FILGRASTIM [Suspect]
     Active Substance: FILGRASTIM
     Route: 048
  20. LEVOFLOXACIN [Suspect]
     Active Substance: LEVOFLOXACIN
     Indication: Tardive dyskinesia
     Route: 048
  21. LEVOFLOXACIN [Suspect]
     Active Substance: LEVOFLOXACIN
     Route: 048
  22. LEVOFLOXACIN [Suspect]
     Active Substance: LEVOFLOXACIN
     Dosage: NOT SPECIFIED
     Route: 048
  23. PACLITAXEL [Suspect]
     Active Substance: PACLITAXEL
     Indication: Breast cancer female
     Dosage: LIQUID INTRAVENOUS
     Route: 042
  24. PACLITAXEL [Suspect]
     Active Substance: PACLITAXEL
     Indication: Supportive care
     Dosage: LIQUID INTRAVENOUS
     Route: 042
  25. PACLITAXEL [Suspect]
     Active Substance: PACLITAXEL
     Dosage: LIQUID INTRAVENOUS
     Route: 042
  26. PACLITAXEL [Suspect]
     Active Substance: PACLITAXEL
     Dosage: SOLUTION FOR?INJECTION/INFUSION
     Route: 042
  27. PACLITAXEL [Suspect]
     Active Substance: PACLITAXEL
     Dosage: SOLUTION FOR?INJECTION/INFUSION
     Route: 042
  28. PACLITAXEL [Suspect]
     Active Substance: PACLITAXEL
     Dosage: SOLUTION FOR?INJECTION/INFUSION
     Route: 042
  29. PACLITAXEL [Suspect]
     Active Substance: PACLITAXEL
     Dosage: SOLUTION FOR?INJECTION/INFUSION
     Route: 042
  30. PACLITAXEL [Suspect]
     Active Substance: PACLITAXEL
     Dosage: SOLUTION FOR?INJECTION/INFUSION
     Route: 042
  31. PACLITAXEL [Suspect]
     Active Substance: PACLITAXEL
     Dosage: SOLUTION FOR?INJECTION/INFUSION
     Route: 042
  32. PEGFILGRASTIM [Suspect]
     Active Substance: PEGFILGRASTIM
     Indication: Product used for unknown indication
     Route: 058
  33. PEGFILGRASTIM [Suspect]
     Active Substance: PEGFILGRASTIM
     Indication: Supportive care
  34. CYCLOPHOSPHAMIDE [Suspect]
     Active Substance: CYCLOPHOSPHAMIDE
     Indication: Breast cancer female
     Route: 042
  35. CYCLOPHOSPHAMIDE [Suspect]
     Active Substance: CYCLOPHOSPHAMIDE
     Indication: Tardive dyskinesia
     Route: 065
  36. CYCLOPHOSPHAMIDE [Suspect]
     Active Substance: CYCLOPHOSPHAMIDE
     Route: 042
  37. CYCLOPHOSPHAMIDE [Suspect]
     Active Substance: CYCLOPHOSPHAMIDE
     Route: 042
  38. CYCLOPHOSPHAMIDE [Suspect]
     Active Substance: CYCLOPHOSPHAMIDE
     Route: 042
  39. RANITIDINE HYDROCHLORIDE [Suspect]
     Active Substance: RANITIDINE HYDROCHLORIDE
     Indication: Tardive dyskinesia
     Route: 048
  40. RANITIDINE HYDROCHLORIDE [Suspect]
     Active Substance: RANITIDINE HYDROCHLORIDE
     Route: 048
  41. RANITIDINE HYDROCHLORIDE [Suspect]
     Active Substance: RANITIDINE HYDROCHLORIDE
     Route: 048
  42. RANITIDINE HYDROCHLORIDE [Suspect]
     Active Substance: RANITIDINE HYDROCHLORIDE
     Route: 048
  43. RANITIDINE HYDROCHLORIDE [Suspect]
     Active Substance: RANITIDINE HYDROCHLORIDE
     Dosage: RANITIDINE
     Route: 048
  44. TRASTUZUMAB [Suspect]
     Active Substance: TRASTUZUMAB
     Indication: Tardive dyskinesia
     Route: 065
  45. TRASTUZUMAB [Suspect]
     Active Substance: TRASTUZUMAB
     Route: 065
  46. TRASTUZUMAB [Suspect]
     Active Substance: TRASTUZUMAB
     Route: 048
  47. TRASTUZUMAB [Suspect]
     Active Substance: TRASTUZUMAB
     Route: 065
  48. TRASTUZUMAB [Suspect]
     Active Substance: TRASTUZUMAB
     Route: 065
  49. TRASTUZUMAB [Suspect]
     Active Substance: TRASTUZUMAB
     Route: 065
  50. TRASTUZUMAB [Suspect]
     Active Substance: TRASTUZUMAB
     Route: 065
  51. TYLENOL WITH CODEINE [Suspect]
     Active Substance: ACETAMINOPHEN\CODEINE PHOSPHATE
     Indication: Tardive dyskinesia
     Route: 065
  52. APREPITANT [Suspect]
     Active Substance: APREPITANT
     Indication: Supportive care
     Route: 048
  53. APREPITANT [Suspect]
     Active Substance: APREPITANT
     Route: 048
  54. DOXORUBICIN [Suspect]
     Active Substance: DOXORUBICIN
     Indication: Breast cancer
     Dosage: INTRAVENOUS
     Route: 042
  55. BETAMETHASONE [Suspect]
     Active Substance: BETAMETHASONE\BETAMETHASONE DIPROPIONATE
     Indication: Tardive dyskinesia
     Route: 048
  56. BETAMETHASONE [Suspect]
     Active Substance: BETAMETHASONE\BETAMETHASONE DIPROPIONATE
     Route: 065
  57. BETAMETHASONE [Suspect]
     Active Substance: BETAMETHASONE\BETAMETHASONE DIPROPIONATE
     Route: 048
  58. EMEND [Suspect]
     Active Substance: APREPITANT
     Indication: Supportive care
     Route: 048
  59. EMEND [Suspect]
     Active Substance: APREPITANT
     Route: 048
  60. EMEND [Suspect]
     Active Substance: APREPITANT
     Route: 048
  61. EMEND [Suspect]
     Active Substance: APREPITANT
     Route: 048
  62. EMEND [Suspect]
     Active Substance: APREPITANT
     Route: 048
  63. EMEND [Suspect]
     Active Substance: APREPITANT
     Route: 048
  64. METOCLOPRAMIDE [Suspect]
     Active Substance: METOCLOPRAMIDE
     Indication: Tardive dyskinesia
     Route: 048
  65. METOCLOPRAMIDE [Suspect]
     Active Substance: METOCLOPRAMIDE
     Route: 048
  66. METOCLOPRAMIDE [Suspect]
     Active Substance: METOCLOPRAMIDE
     Route: 048
  67. ACETAMINOPHEN\CODEINE PHOSPHATE [Suspect]
     Active Substance: ACETAMINOPHEN\CODEINE PHOSPHATE
     Indication: Tardive dyskinesia
     Dosage: ELIXIR
     Route: 065
  68. ACETAMINOPHEN\CODEINE PHOSPHATE [Suspect]
     Active Substance: ACETAMINOPHEN\CODEINE PHOSPHATE
     Route: 065
  69. ACETAMINOPHEN\CODEINE PHOSPHATE [Suspect]
     Active Substance: ACETAMINOPHEN\CODEINE PHOSPHATE
     Dosage: ELIXIR
     Route: 065
  70. ACETAMINOPHEN\CODEINE PHOSPHATE [Suspect]
     Active Substance: ACETAMINOPHEN\CODEINE PHOSPHATE
     Route: 065
  71. NEULASTA [Suspect]
     Active Substance: PEGFILGRASTIM
     Indication: Supportive care
     Route: 058
  72. NEULASTA [Suspect]
     Active Substance: PEGFILGRASTIM
     Route: 058
  73. NEULASTA [Suspect]
     Active Substance: PEGFILGRASTIM
     Route: 058
  74. NEULASTA [Suspect]
     Active Substance: PEGFILGRASTIM
     Dosage: SOLUTION?SUBCUTANEOUS
     Route: 058
  75. NEULASTA [Suspect]
     Active Substance: PEGFILGRASTIM
     Route: 058
  76. NEUPOGEN [Suspect]
     Active Substance: FILGRASTIM
     Indication: Supportive care
     Dosage: SOLUTION INTRAVENOUS
     Route: 048
  77. NEUPOGEN [Suspect]
     Active Substance: FILGRASTIM
     Dosage: SOLUTION INTRAVENOUS
     Route: 065
  78. NEUPOGEN [Suspect]
     Active Substance: FILGRASTIM
     Dosage: SOLUTION INTRAVENOUS
     Route: 065
  79. NEUPOGEN [Suspect]
     Active Substance: FILGRASTIM
     Route: 048
  80. NEUPOGEN [Suspect]
     Active Substance: FILGRASTIM
     Route: 048
  81. NEUPOGEN [Suspect]
     Active Substance: FILGRASTIM
     Route: 065
  82. NEUPOGEN [Suspect]
     Active Substance: FILGRASTIM
     Route: 048
  83. NEUPOGEN [Suspect]
     Active Substance: FILGRASTIM
     Route: 065
  84. ONDANSETRON [Suspect]
     Active Substance: ONDANSETRON
     Indication: Supportive care
     Route: 048
  85. ONDANSETRON [Suspect]
     Active Substance: ONDANSETRON
     Route: 048
  86. ONDANSETRON [Suspect]
     Active Substance: ONDANSETRON
     Route: 065
  87. ONDANSETRON [Suspect]
     Active Substance: ONDANSETRON
     Route: 048
  88. ONDANSETRON [Suspect]
     Active Substance: ONDANSETRON
     Route: 048
  89. ONDANSETRON [Suspect]
     Active Substance: ONDANSETRON
     Route: 048
  90. ONDANSETRON [Suspect]
     Active Substance: ONDANSETRON
     Route: 048
  91. ONDANSETRON [Suspect]
     Active Substance: ONDANSETRON
     Route: 048
  92. CYCLOPHOSPHAMIDE [Suspect]
     Active Substance: CYCLOPHOSPHAMIDE
     Indication: Tardive dyskinesia
     Route: 042
  93. CYCLOPHOSPHAMIDE [Suspect]
     Active Substance: CYCLOPHOSPHAMIDE
     Indication: Breast cancer female
     Route: 042
  94. CYCLOPHOSPHAMIDE [Suspect]
     Active Substance: CYCLOPHOSPHAMIDE
     Route: 065

REACTIONS (12)
  - Atelectasis [Recovered/Resolved]
  - Cough [Recovered/Resolved]
  - Gastrointestinal disorder [Recovered/Resolved]
  - Hypoxia [Recovered/Resolved]
  - Computerised tomogram thorax abnormal [Recovered/Resolved]
  - Dyspnoea [Recovered/Resolved]
  - Computerised tomogram thorax [Recovered/Resolved]
  - Rash [Recovered/Resolved]
  - Pyrexia [Recovered/Resolved]
  - Fatigue [Recovered/Resolved]
  - Nausea [Recovered/Resolved]
  - Off label use [Recovered/Resolved]
